FAERS Safety Report 4417286-X (Version None)
Quarter: 2004Q2

REPORT INFORMATION
  Report Type: 
  Country: None (occurrence: None)
  Receive Date: 20040629
  Receipt Date: 20031103
  Transmission Date: 20050107
  Serious: Yes (Hospitalization, Other)
  Sender: FDA-Public Use
  Company Number: US_031198705

PATIENT
  Age: 49 Year
  Sex: Male
  Weight: 99 kg

DRUGS (5)
  1. HUMULIN N [Suspect]
     Indication: DIABETES MELLITUS
     Dates: start: 19730101
  2. HUMULIN L [Suspect]
     Indication: DIABETES MELLITUS
  3. HUMULIN R [Suspect]
     Indication: DIABETES MELLITUS
     Dates: start: 19900101, end: 20030501
  4. HUMALOG [Suspect]
     Indication: DIABETES MELLITUS
     Dates: start: 20030501
  5. INSULIN GLARGINE [Concomitant]

REACTIONS (1)
  - HYPOGLYCAEMIA [None]
